FAERS Safety Report 17108990 (Version 1)
Quarter: 2019Q4

REPORT INFORMATION
  Report Type: Spontaneous
  Country: US (occurrence: US)
  Receive Date: 20191203
  Receipt Date: 20191203
  Transmission Date: 20200122
  Serious: Yes (Hospitalization)
  Sender: FDA-Public Use
  Company Number: US-BAUSCH-BL-2019-062567

PATIENT
  Age: 75 Year
  Sex: Female
  Weight: 67.65 kg

DRUGS (3)
  1. ATIVAN [Suspect]
     Active Substance: LORAZEPAM
     Indication: ANXIETY
     Dosage: START DATE: ABOUT A YEAR PRIOR TO INITIAL REPORT; AS NEEDED
     Route: 048
     Dates: start: 2018, end: 201906
  2. ATIVAN [Suspect]
     Active Substance: LORAZEPAM
     Dosage: AS NEEDED; ?DURATION: TRIED FOR ABOUT 2 TO 3 WEEKS
     Route: 048
     Dates: start: 201910, end: 2019
  3. CLONAZEPAM. [Suspect]
     Active Substance: CLONAZEPAM
     Indication: ANXIETY
     Dosage: UNKNOWN MANUFACTURER; START DATE: ABOUT A WEEK PRIOR TO INITIAL REPORT
     Route: 065
     Dates: start: 201911

REACTIONS (7)
  - Gastritis [Not Recovered/Not Resolved]
  - Therapeutic product effect incomplete [Unknown]
  - Insurance issue [Unknown]
  - Product availability issue [Unknown]
  - Weight decreased [Unknown]
  - Fear of eating [Not Recovered/Not Resolved]
  - Product substitution issue [Unknown]

NARRATIVE: CASE EVENT DATE: 201906
